FAERS Safety Report 9463810 (Version 1)
Quarter: 2013Q3

REPORT INFORMATION
  Report Type: Spontaneous
  Country: US (occurrence: US)
  Receive Date: 20130819
  Receipt Date: 20130819
  Transmission Date: 20140515
  Serious: Yes (Death)
  Sender: FDA-Public Use
  Company Number: US-ASTELLAS-2013US008610

PATIENT
  Sex: Male

DRUGS (1)
  1. TARCEVA [Suspect]
     Indication: HYPOPHARYNGEAL CANCER
     Dosage: 150 MG, UID/QD
     Route: 048
     Dates: start: 20130412

REACTIONS (2)
  - Off label use [Unknown]
  - Death [Fatal]
